FAERS Safety Report 22366601 (Version 1)
Quarter: 2023Q2

REPORT INFORMATION
  Report Type: Spontaneous
  Country: US (occurrence: None)
  Receive Date: 20230524
  Receipt Date: 20230524
  Transmission Date: 20230722
  Serious: No
  Sender: FDA-Public Use
  Company Number: None

PATIENT
  Age: 52 Year
  Sex: Female

DRUGS (1)
  1. GENOTROPIN [Suspect]
     Active Substance: SOMATROPIN
     Dosage: FREQUENCY : DAILY;?
     Route: 058

REACTIONS (6)
  - Confusional state [None]
  - Therapy interrupted [None]
  - Feeling drunk [None]
  - Insurance issue [None]
  - Dysphonia [None]
  - Heart rate increased [None]

NARRATIVE: CASE EVENT DATE: 20230522
